FAERS Safety Report 21041196 (Version 2)
Quarter: 2022Q3

REPORT INFORMATION
  Report Type: Spontaneous
  Country: US (occurrence: US)
  Receive Date: 20220705
  Receipt Date: 20220721
  Transmission Date: 20221027
  Serious: Yes (Other)
  Sender: FDA-Public Use
  Company Number: US-009507513-2206USA008798

PATIENT
  Age: 74 Year
  Sex: Male

DRUGS (17)
  1. KEYTRUDA [Suspect]
     Active Substance: PEMBROLIZUMAB
     Indication: Colon cancer
     Dosage: UNK
     Dates: start: 201805
  2. KEYTRUDA [Suspect]
     Active Substance: PEMBROLIZUMAB
     Indication: Malignant lymphoid neoplasm
  3. ASPIRIN [Concomitant]
     Active Substance: ASPIRIN
     Route: 048
  4. ALEVE [Concomitant]
     Active Substance: NAPROXEN SODIUM
  5. TAMSULOSIN [Concomitant]
     Active Substance: TAMSULOSIN
  6. FENOFIBRATE [Concomitant]
     Active Substance: FENOFIBRATE
  7. LOVAZA [Concomitant]
     Active Substance: OMEGA-3-ACID ETHYL ESTERS
  8. SPIRONOLACTONE [Concomitant]
     Active Substance: SPIRONOLACTONE
  9. BUPROPION HCL SANDOZ RETARD [Concomitant]
  10. DOMEBORO [Concomitant]
     Active Substance: ALUMINUM ACETATE
  11. DOXEPIN [Concomitant]
     Active Substance: DOXEPIN
  12. NEURONTIN [Concomitant]
     Active Substance: GABAPENTIN
  13. FUROSEMIDE [Concomitant]
     Active Substance: FUROSEMIDE
  14. ALBUTEROL SULFATE [Concomitant]
     Active Substance: ALBUTEROL SULFATE
  15. MOBIC [Concomitant]
     Active Substance: MELOXICAM
  16. CYANOCOBALAMIN [Concomitant]
     Active Substance: CYANOCOBALAMIN
  17. PROTONIX [Concomitant]
     Active Substance: PANTOPRAZOLE SODIUM

REACTIONS (36)
  - Cranial nerve paralysis [Unknown]
  - Hip arthroplasty [Unknown]
  - Groin abscess [Unknown]
  - Malignant neoplasm progression [Unknown]
  - Vocal cord paralysis [Unknown]
  - Herpes zoster [Unknown]
  - Post herpetic neuralgia [Unknown]
  - Iron deficiency anaemia [Unknown]
  - Lumbosacral radiculopathy [Unknown]
  - Diarrhoea [Unknown]
  - Osteoarthritis [Unknown]
  - Sleep apnoea syndrome [Unknown]
  - Rhinitis allergic [Unknown]
  - Cortisol increased [Unknown]
  - Blood glucose increased [Unknown]
  - Carbon dioxide increased [Unknown]
  - Protein total decreased [Unknown]
  - Immature granulocyte percentage increased [Unknown]
  - Granulocyte percentage increased [Unknown]
  - Lymphocyte percentage decreased [Unknown]
  - Granulocyte count increased [Unknown]
  - Lymphocyte count decreased [Unknown]
  - Immature granulocyte count increased [Unknown]
  - Gastroenteritis [Unknown]
  - Hyperglycaemia [Unknown]
  - Somnolence [Unknown]
  - Abdominal mass [Unknown]
  - Pelvic mass [Unknown]
  - Lung disorder [Unknown]
  - Red blood cell count decreased [Unknown]
  - Haemoglobin decreased [Unknown]
  - Haematocrit decreased [Unknown]
  - Mean cell volume increased [Unknown]
  - Mean cell haemoglobin concentration decreased [Unknown]
  - Red cell distribution width increased [Unknown]
  - Nervous system disorder [Unknown]

NARRATIVE: CASE EVENT DATE: 20180615
